FAERS Safety Report 9304055 (Version 1)
Quarter: 2013Q2

REPORT INFORMATION
  Report Type: Spontaneous
  Country: US (occurrence: US)
  Receive Date: 20130522
  Receipt Date: 20130522
  Transmission Date: 20140414
  Serious: Yes (Hospitalization)
  Sender: FDA-Public Use
  Company Number: US-BRISTOL-MYERS SQUIBB COMPANY-18890400

PATIENT
  Age: 68 Year
  Sex: Female
  Weight: 68.03 kg

DRUGS (5)
  1. ABILIFY [Suspect]
     Indication: SCHIZOPHRENIA
     Dates: start: 2004
  2. LAMICTAL [Suspect]
  3. CLOZAPINE [Concomitant]
  4. RISPERDAL [Concomitant]
  5. ZYPREXA [Concomitant]

REACTIONS (2)
  - Adverse event [Unknown]
  - Breast atrophy [Unknown]
